FAERS Safety Report 5490764-0 (Version None)
Quarter: 2007Q4

REPORT INFORMATION
  Report Type: 
  Country: None (occurrence: None)
  Receive Date: 20071019
  Receipt Date: 20071012
  Transmission Date: 20080405
  Serious: Yes (Hospitalization)
  Sender: FDA-Public Use
  Company Number: US-ASTRAZENECA-2007UW00954

PATIENT
  Age: 28171 Day
  Sex: Male
  Weight: 77.7 kg

DRUGS (23)
  1. ROSUVASTATIN [Suspect]
     Indication: DYSLIPIDAEMIA
     Route: 048
     Dates: start: 20060501, end: 20060723
  2. ROSUVASTATIN [Suspect]
     Route: 048
     Dates: start: 20060725, end: 20061122
  3. ROSUVASTATIN [Suspect]
     Route: 048
     Dates: start: 20061124
  4. ABT-335 FENOFIBRIC ACID CHOLINE SALT [Suspect]
     Indication: DYSLIPIDAEMIA
     Route: 048
     Dates: start: 20060725, end: 20061122
  5. ABT-335 FENOFIBRIC ACID CHOLINE SALT [Suspect]
     Route: 048
     Dates: start: 20061124
  6. CLOPIDOGREL BISULFATE [Concomitant]
     Indication: CORONARY ARTERY DISEASE
     Dates: start: 20031201, end: 20061122
  7. ACETYLSALICYLIC ACID [Concomitant]
     Indication: CORONARY ARTERY DISEASE
     Dates: start: 20031201, end: 20061110
  8. ACETYLSALICYLIC ACID [Concomitant]
     Indication: CARDIOVASCULAR EVENT PROPHYLAXIS
     Dates: start: 20031201, end: 20061110
  9. ACETYLSALICYLIC ACID [Concomitant]
     Dates: start: 20061212, end: 20070408
  10. ACETYLSALICYLIC ACID [Concomitant]
     Dates: start: 20061212, end: 20070408
  11. METOPROLOL [Concomitant]
     Indication: HYPERTENSION
     Route: 048
     Dates: start: 20031201
  12. PARACETAMOL [Concomitant]
     Indication: NECK PAIN
     Dates: start: 20060808, end: 20060808
  13. PARACETAMOL [Concomitant]
     Indication: ARTHRALGIA
     Dates: start: 20060808, end: 20060808
  14. PARACETAMOL [Concomitant]
     Dates: start: 20060817, end: 20060817
  15. PARACETAMOL [Concomitant]
     Dates: start: 20060817, end: 20060817
  16. PARACETAMOL [Concomitant]
     Dosage: 500 MG, 5 TIMES TOTAL
     Dates: start: 20060906, end: 20060908
  17. PARACETAMOL [Concomitant]
     Dosage: 500 MG, 5 TIMES TOTAL
     Dates: start: 20060906, end: 20060908
  18. PARACETAMOL [Concomitant]
     Dosage: 2 TABLETS, TWICE
     Dates: start: 20060915, end: 20060915
  19. PARACETAMOL [Concomitant]
     Dosage: 2 TABLETS, TWICE
     Dates: start: 20060915, end: 20060915
  20. CEPHALEXIN [Concomitant]
     Indication: ABSCESS
     Dates: start: 20060821, end: 20060901
  21. CIPROFLOXACIN HYDROCHLORIDE [Concomitant]
     Indication: DIVERTICULITIS
     Dates: start: 20061021, end: 20061030
  22. INFLUENZA VACCINE [Concomitant]
     Indication: PROPHYLAXIS
     Dates: start: 20061016, end: 20061016
  23. LOTRISONE [Concomitant]
     Indication: CANDIDIASIS
     Dosage: 2 DOSAGE FORMS
     Dates: start: 20061106

REACTIONS (1)
  - LOWER GASTROINTESTINAL HAEMORRHAGE [None]
